FAERS Safety Report 25908037 (Version 1)
Quarter: 2025Q4

REPORT INFORMATION
  Report Type: Spontaneous
  Country: GB (occurrence: GB)
  Receive Date: 20251010
  Receipt Date: 20251010
  Transmission Date: 20260119
  Serious: Yes (Life-Threatening, Hospitalization, Other)
  Sender: INSMED
  Company Number: None

PATIENT
  Sex: Male

DRUGS (1)
  1. ARIKAYCE [Suspect]
     Active Substance: AMIKACIN
     Indication: Atypical mycobacterial infection
     Dosage: UNK UNK, UNK
     Route: 055

REACTIONS (5)
  - Coma [Unknown]
  - PCO2 increased [Unknown]
  - Respiratory acidosis [Unknown]
  - Hypoxia [Unknown]
  - Bronchospasm [Unknown]
